FAERS Safety Report 5396984-8 (Version None)
Quarter: 2007Q3

REPORT INFORMATION
  Report Type: 
  Country: None (occurrence: None)
  Receive Date: 20070725
  Receipt Date: 20070525
  Transmission Date: 20080115
  Serious: No
  Sender: FDA-Public Use
  Company Number: US-BAUSCH-2007BL001739

PATIENT
  Age: 74 Year
  Sex: Male

DRUGS (3)
  1. TROPICAMIDE [Suspect]
     Indication: OPHTHALMOLOGICAL EXAMINATION
     Route: 047
     Dates: start: 20070522, end: 20070522
  2. XALATAN /SWE/ [Concomitant]
     Indication: OPEN ANGLE GLAUCOMA
     Route: 047
  3. TIMOPTIC [Concomitant]
     Indication: OPEN ANGLE GLAUCOMA
     Route: 047

REACTIONS (4)
  - BALANCE DISORDER [None]
  - CLUMSINESS [None]
  - CONFUSIONAL STATE [None]
  - DIZZINESS [None]
